FAERS Safety Report 24640654 (Version 2)
Quarter: 2024Q4

REPORT INFORMATION
  Report Type: Spontaneous
  Country: CN (occurrence: CN)
  Receive Date: 20241120
  Receipt Date: 20241202
  Transmission Date: 20250114
  Serious: Yes (Life-Threatening, Hospitalization, Other)
  Sender: ALEXION PHARMACEUTICALS
  Company Number: CN-SANOFI-02301650

PATIENT
  Age: 10 Month
  Weight: 6.5 kg

DRUGS (6)
  1. NIRSEVIMAB [Suspect]
     Active Substance: NIRSEVIMAB
     Indication: Respiratory syncytial virus immunisation
     Dosage: 100 MG 1X
  2. NIRSEVIMAB [Suspect]
     Active Substance: NIRSEVIMAB
     Dosage: 100 MG 1X
     Route: 065
  3. NIRSEVIMAB [Suspect]
     Active Substance: NIRSEVIMAB
     Dosage: 100 MG 1X
     Route: 065
  4. NIRSEVIMAB [Suspect]
     Active Substance: NIRSEVIMAB
     Dosage: 100 MG 1X
  5. NIRSEVIMAB [Suspect]
     Active Substance: NIRSEVIMAB
     Dosage: UNK
  6. NIRSEVIMAB [Suspect]
     Active Substance: NIRSEVIMAB
     Dosage: UNK

REACTIONS (6)
  - Respiratory syncytial virus infection [Not Recovered/Not Resolved]
  - Cough [Unknown]
  - Pneumonia [Unknown]
  - Acute respiratory failure [Unknown]
  - Bronchopulmonary dysplasia [Unknown]
  - Blood immunoglobulin G decreased [Unknown]
